FAERS Safety Report 11706019 (Version 1)
Quarter: 2015Q4

REPORT INFORMATION
  Report Type: Spontaneous
  Country: US (occurrence: US)
  Receive Date: 20151106
  Receipt Date: 20151106
  Transmission Date: 20160304
  Serious: Yes (Other)
  Sender: FDA-Public Use
  Company Number: US-FRI-1000080795

PATIENT
  Sex: Female

DRUGS (3)
  1. ARMOUR THYROID [Suspect]
     Active Substance: THYROID, PORCINE\THYROID, UNSPECIFIED
  2. DIABETES MEDICATIONS (UNSPECIFIED) [Concomitant]
  3. ANTI-DEPRESSANTS (UNSPECIFIED) [Concomitant]

REACTIONS (7)
  - Alopecia [Unknown]
  - Rash pruritic [Unknown]
  - Breast cyst [Unknown]
  - Depression [Unknown]
  - Ovarian cyst [Unknown]
  - Abnormal weight gain [Unknown]
  - Fatigue [Unknown]
